FAERS Safety Report 7033223-6 (Version None)
Quarter: 2010Q4

REPORT INFORMATION
  Report Type: 
  Country: None (occurrence: None)
  Receive Date: 20101005
  Receipt Date: 20100922
  Transmission Date: 20110411
  Serious: Yes (Life-Threatening, Disabling)
  Sender: FDA-Public Use
  Company Number: 1000016458

PATIENT
  Age: 58 Year
  Sex: Male

DRUGS (2)
  1. CITALOPRAM (CITALOPRAM HYDROBROMIDE) [Suspect]
     Indication: ANXIETY
     Dosage: 10 MG (10 MG,1 IN 1 D),ORAL
     Route: 048
     Dates: start: 20100809, end: 20100902
  2. AMOXICILLIN [Concomitant]

REACTIONS (4)
  - INTENTIONAL SELF-INJURY [None]
  - OFF LABEL USE [None]
  - SKIN LACERATION [None]
  - SUICIDAL IDEATION [None]
